FAERS Safety Report 8087582-6 (Version None)
Quarter: 2012Q1

REPORT INFORMATION
  Report Type: 
  Country: None (occurrence: None)
  Receive Date: 20120128
  Receipt Date: 20110526
  Transmission Date: 20120608
  Serious: No
  Sender: FDA-Public Use
  Company Number: US-ABBOTT-11P-163-0728572-00

PATIENT
  Age: 62 Year
  Sex: Female

DRUGS (2)
  1. HUMIRA [Suspect]
     Indication: PSORIASIS
     Dates: start: 20110401
  2. BENICAR [Concomitant]
     Indication: HYPERTENSION
     Route: 048

REACTIONS (4)
  - INJECTION SITE RASH [None]
  - ARTHRALGIA [None]
  - INJECTION SITE OEDEMA [None]
  - OEDEMA PERIPHERAL [None]
